FAERS Safety Report 4881840-1 (Version None)
Quarter: 2006Q1

REPORT INFORMATION
  Report Type: 
  Country: None (occurrence: None)
  Receive Date: 20060112
  Receipt Date: 20060112
  Transmission Date: 20060701
  Serious: Yes (Life-Threatening)
  Sender: FDA-Public Use
  Company Number: None

PATIENT
  Age: 25 Year
  Sex: Female

DRUGS (1)
  1. ROZEREM [Suspect]
     Indication: INSOMNIA
     Dosage: 8 MG QHS PO
     Route: 048
     Dates: start: 20060109, end: 20060109

REACTIONS (5)
  - DRUG HYPERSENSITIVITY [None]
  - MYOCLONUS [None]
  - NAUSEA [None]
  - TREMOR [None]
  - VOMITING [None]
